FAERS Safety Report 20505213 (Version 1)
Quarter: 2022Q1

REPORT INFORMATION
  Report Type: Spontaneous
  Country: PT (occurrence: PT)
  Receive Date: 20220223
  Receipt Date: 20220223
  Transmission Date: 20220423
  Serious: Yes (Other)
  Sender: FDA-Public Use
  Company Number: None

PATIENT
  Age: 75 Year
  Sex: Female

DRUGS (1)
  1. LEVOFLOXACIN SODIUM [Suspect]
     Active Substance: LEVOFLOXACIN SODIUM
     Indication: Pyelonephritis
     Route: 042
     Dates: start: 20211214, end: 20211215

REACTIONS (2)
  - Infusion site pain [Recovered/Resolved]
  - Infusion site erythema [Recovered/Resolved]

NARRATIVE: CASE EVENT DATE: 20211215
